FAERS Safety Report 11965210 (Version 2)
Quarter: 2016Q1

REPORT INFORMATION
  Report Type: Spontaneous
  Country: US (occurrence: US)
  Receive Date: 20160127
  Receipt Date: 20160203
  Transmission Date: 20160526
  Serious: Yes (Other)
  Sender: FDA-Public Use
  Company Number: US-ENDO PHARMACEUTICALS INC.-2016-000449

PATIENT
  Age: 69 Year
  Sex: Female
  Weight: 68.1 kg

DRUGS (4)
  1. METHOCARBAMOL TABLETS 500MG [Suspect]
     Active Substance: METHOCARBAMOL
     Indication: BACK DISORDER
  2. ASPIRIN. [Concomitant]
     Active Substance: ASPIRIN
     Indication: FAMILIAL RISK FACTOR
     Route: 048
     Dates: start: 201512
  3. METHOCARBAMOL TABLETS 500MG [Suspect]
     Active Substance: METHOCARBAMOL
     Indication: MUSCLE RELAXANT THERAPY
     Route: 048
     Dates: start: 201510, end: 20160108
  4. METOPROLOL XL [Concomitant]
     Active Substance: METOPROLOL SUCCINATE
     Indication: ATRIAL FIBRILLATION
     Route: 065
     Dates: start: 2007

REACTIONS (6)
  - Eye disorder [Recovering/Resolving]
  - Wrong technique in product usage process [Recovered/Resolved]
  - Unevaluable event [Recovering/Resolving]
  - Intentional underdose [Recovered/Resolved]
  - Retinal haemorrhage [Recovering/Resolving]
  - Scleral thinning [Recovering/Resolving]

NARRATIVE: CASE EVENT DATE: 201510
